FAERS Safety Report 24820827 (Version 1)
Quarter: 2025Q1

REPORT INFORMATION
  Report Type: Spontaneous
  Country: US (occurrence: US)
  Receive Date: 20250108
  Receipt Date: 20250108
  Transmission Date: 20250409
  Serious: No
  Sender: SANOFI AVENTIS
  Company Number: US-SA-2025SA001885

PATIENT
  Sex: Female

DRUGS (1)
  1. TAXOTERE [Suspect]
     Active Substance: DOCETAXEL
     Dates: start: 201910, end: 202002

REACTIONS (1)
  - Lacrimation increased [Unknown]
